FAERS Safety Report 6880479-6 (Version None)
Quarter: 2010Q3

REPORT INFORMATION
  Report Type: 
  Country: None (occurrence: None)
  Receive Date: 20100727
  Receipt Date: 20100720
  Transmission Date: 20110219
  Serious: Yes (Hospitalization)
  Sender: FDA-Public Use
  Company Number: A0871408A

PATIENT
  Age: 65 Year
  Sex: Female

DRUGS (12)
  1. ADVAIR DISKUS 100/50 [Suspect]
     Indication: CHRONIC OBSTRUCTIVE PULMONARY DISEASE
     Dosage: 1PUFF IN THE MORNING
     Route: 055
     Dates: start: 20070101
  2. METOPROLOL TARTRATE [Concomitant]
  3. LASIX [Concomitant]
  4. POTASSIUM [Concomitant]
  5. DIOVAN [Concomitant]
  6. WELLBUTRIN [Concomitant]
  7. PLAVIX [Concomitant]
  8. FISH OIL [Concomitant]
  9. ZOCOR [Concomitant]
  10. NORVASC [Concomitant]
  11. NEURONTIN [Concomitant]
  12. INSULIN [Concomitant]

REACTIONS (3)
  - ARTERIAL THERAPEUTIC PROCEDURE [None]
  - CEREBROVASCULAR ACCIDENT [None]
  - MYOCARDIAL INFARCTION [None]
